FAERS Safety Report 4810549-5 (Version None)
Quarter: 2005Q4

REPORT INFORMATION
  Report Type: 
  Country: None (occurrence: None)
  Receive Date: 20051026
  Receipt Date: 20051018
  Transmission Date: 20060501
  Serious: Yes (Other)
  Sender: FDA-Public Use
  Company Number: PHFR2005GB03467

PATIENT
  Sex: Male

DRUGS (4)
  1. LITHIUM [Concomitant]
     Route: 065
  2. PROMAZINE HCL [Concomitant]
     Route: 065
  3. OLANZAPINE [Concomitant]
     Route: 065
  4. TEGRETOL [Suspect]
     Indication: BIPOLAR DISORDER
     Dosage: 400 MG, BID
     Route: 065

REACTIONS (9)
  - ABNORMAL BEHAVIOUR [None]
  - AGGRESSION [None]
  - DYSPHEMIA [None]
  - FATIGUE [None]
  - SEDATION [None]
  - SELF-INJURIOUS IDEATION [None]
  - SLEEP TERROR [None]
  - SOMNOLENCE [None]
  - WEIGHT INCREASED [None]
